FAERS Safety Report 25032027 (Version 2)
Quarter: 2025Q1

REPORT INFORMATION
  Report Type: Spontaneous
  Country: US (occurrence: US)
  Receive Date: 20250303
  Receipt Date: 20250303
  Transmission Date: 20250409
  Serious: Yes (Other)
  Sender: PFIZER
  Company Number: US-PFIZER INC-202500045844

PATIENT
  Sex: Female

DRUGS (2)
  1. PREMARIN [Suspect]
     Active Substance: ESTROGENS, CONJUGATED
     Indication: Amenorrhoea
  2. PREMARIN [Suspect]
     Active Substance: ESTROGENS, CONJUGATED
     Indication: Ovarian agenesis

REACTIONS (5)
  - Glaucoma [Unknown]
  - Retinal tear [Unknown]
  - Age-related macular degeneration [Unknown]
  - Visual impairment [Unknown]
  - Scar [Unknown]
